FAERS Safety Report 25668808 (Version 2)
Quarter: 2025Q3

REPORT INFORMATION
  Report Type: Spontaneous
  Country: JP (occurrence: JP)
  Receive Date: 20250812
  Receipt Date: 20250912
  Transmission Date: 20251020
  Serious: Yes (Death)
  Sender: JOHNSON AND JOHNSON
  Company Number: JP-JNJFOC-20250813193

PATIENT
  Age: 72 Year
  Sex: Male

DRUGS (9)
  1. REMICADE [Suspect]
     Active Substance: INFLIXIMAB
     Indication: Pulmonary toxicity
     Route: 065
  2. REMICADE [Suspect]
     Active Substance: INFLIXIMAB
     Route: 065
  3. PREDNISOLONE [Concomitant]
     Active Substance: PREDNISOLONE
     Indication: Pulmonary toxicity
     Dosage: 70 MILLIGRAM, QD
     Route: 065
  4. PREDNISOLONE [Concomitant]
     Active Substance: PREDNISOLONE
     Dosage: 40 MILLIGRAM, QD
     Route: 065
  5. PREDNISOLONE [Concomitant]
     Active Substance: PREDNISOLONE
     Dosage: 70 MILLIGRAM, QD
     Route: 065
  6. PREDNISOLONE [Concomitant]
     Active Substance: PREDNISOLONE
     Dosage: 60 MILLIGRAM, QD
     Route: 065
  7. PREDNISOLONE [Concomitant]
     Active Substance: PREDNISOLONE
     Dosage: 50 MILLIGRAM, QD
     Route: 065
  8. PREDNISOLONE [Concomitant]
     Active Substance: PREDNISOLONE
     Dosage: 20 MILLIGRAM, QD
     Route: 065
  9. PREDNISOLONE [Concomitant]
     Active Substance: PREDNISOLONE
     Dosage: 5 MILLIGRAM, QD
     Route: 065

REACTIONS (2)
  - Gastric cancer [Fatal]
  - Off label use [Unknown]
